FAERS Safety Report 20069875 (Version 1)
Quarter: 2021Q4

REPORT INFORMATION
  Report Type: Spontaneous
  Country: US (occurrence: US)
  Receive Date: 20211115
  Receipt Date: 20211115
  Transmission Date: 20220303
  Serious: Yes (Other)
  Sender: FDA-Public Use
  Company Number: US-Hikma Pharmaceuticals USA Inc.-US-H14001-21-04554

PATIENT
  Age: 91 Year
  Sex: Female

DRUGS (2)
  1. CIPROFLOXACIN [Suspect]
     Active Substance: CIPROFLOXACIN
     Indication: Urinary tract infection
     Route: 048
     Dates: start: 20211012, end: 20211019
  2. CIPROFLOXACIN [Suspect]
     Active Substance: CIPROFLOXACIN
     Indication: Escherichia urinary tract infection

REACTIONS (5)
  - Drug ineffective [Unknown]
  - Fatigue [Unknown]
  - Urine odour abnormal [Unknown]
  - Chromaturia [Unknown]
  - Pathogen resistance [Unknown]
